FAERS Safety Report 8283666-8 (Version None)
Quarter: 2012Q2

REPORT INFORMATION
  Report Type: 
  Country: None (occurrence: None)
  Receive Date: 20120413
  Receipt Date: 20120410
  Transmission Date: 20120825
  Serious: Yes (Other)
  Sender: FDA-Public Use
  Company Number: DE-PFIZER INC-2012088975

PATIENT
  Sex: Female
  Weight: 91 kg

DRUGS (3)
  1. JODTHYROX [Concomitant]
     Indication: GOITRE
     Dosage: UNK, 1X/DAY
     Route: 048
  2. AZITHROMYCIN [Suspect]
     Indication: RESPIRATORY TRACT INFECTION
     Dosage: UNK, 1X/DAY
     Route: 048
  3. OPIPRAMOL [Concomitant]
     Indication: PANIC ATTACK
     Dosage: UNK, 1X/DAY
     Route: 048

REACTIONS (4)
  - FLATULENCE [None]
  - HEADACHE [None]
  - DIARRHOEA [None]
  - ABDOMINAL DISTENSION [None]
